FAERS Safety Report 4277916-2 (Version None)
Quarter: 2004Q1

REPORT INFORMATION
  Report Type: 
  Country: None (occurrence: None)
  Receive Date: 20040123
  Receipt Date: 20040113
  Transmission Date: 20041129
  Serious: Yes (Disabling)
  Sender: FDA-Public Use
  Company Number: CH-GLAXOSMITHKLINE-B0319676A

PATIENT
  Age: 87 Year
  Sex: Female

DRUGS (6)
  1. DILATREND [Suspect]
     Dosage: 6.25MG TWICE PER DAY
     Route: 048
     Dates: start: 20021024
  2. PODOMEXEF [Suspect]
     Indication: INTESTINAL FISTULA
     Dosage: 200MG TWICE PER DAY
     Route: 048
     Dates: start: 20031002, end: 20031026
  3. BIOFLORIN [Concomitant]
     Dates: start: 20030924
  4. LASIX [Concomitant]
  5. HALCION [Concomitant]
     Dates: end: 20031101
  6. ANTRA [Concomitant]
     Dates: start: 20030601

REACTIONS (10)
  - ABSCESS [None]
  - COLONIC STENOSIS [None]
  - DIVERTICULITIS [None]
  - DRUG INTERACTION [None]
  - DYSAESTHESIA [None]
  - PARAESTHESIA [None]
  - PYREXIA [None]
  - SLEEP DISORDER [None]
  - URINARY TRACT DISORDER [None]
  - VESICAL FISTULA [None]
